FAERS Safety Report 8570789-9 (Version None)
Quarter: 2012Q3

REPORT INFORMATION
  Report Type: 
  Country: None (occurrence: None)
  Receive Date: 20120806
  Receipt Date: 20120801
  Transmission Date: 20120928
  Serious: Yes (Death, Hospitalization)
  Sender: FDA-Public Use
  Company Number: BE-AMGEN-BELSP2012048338

PATIENT
  Age: 69 Year
  Sex: Female

DRUGS (15)
  1. RITUXIMAB [Suspect]
     Indication: DIFFUSE LARGE B-CELL LYMPHOMA
     Dosage: 720 MG, UNK
     Dates: start: 20061018
  2. IFOSFAMIDE [Suspect]
     Dosage: 9500 MG, UNK
     Dates: start: 20061130
  3. PEGFILGRASTIM [Suspect]
     Indication: DIFFUSE LARGE B-CELL LYMPHOMA
     Dosage: 6000 MUG, QD (DAY 6 TO DAY 13)
  4. CYTARABINE [Concomitant]
     Dosage: 3120 MG, UNK
     Dates: start: 20070119
  5. MELPHALAN HYDROCHLORIDE [Concomitant]
     Dosage: 270 MG, UNK
  6. RITUXIMAB [Suspect]
     Dosage: 710 MG, UNK
     Dates: start: 20061129
  7. ETOPOSIDE [Suspect]
     Indication: DIFFUSE LARGE B-CELL LYMPHOMA
     Dosage: 190 MG, UNK
     Dates: start: 20061018
  8. IFOSFAMIDE [Suspect]
     Indication: DIFFUSE LARGE B-CELL LYMPHOMA
     Dosage: 9600 MG, UNK
     Dates: start: 20060219
  9. CARBOPLATIN [Suspect]
     Indication: DIFFUSE LARGE B-CELL LYMPHOMA
     Dosage: 700 MG, UNK
     Dates: start: 20061019
  10. ETOPOSIDE [Suspect]
     Dosage: 1600 MG, UNK
     Dates: start: 20070116
  11. CARBOPLATIN [Suspect]
     Dosage: 720 MG, UNK
     Dates: start: 20061130
  12. RITUXIMAB [Suspect]
     Dosage: 710 MG, UNK
     Dates: start: 20061108
  13. CARBOPLATIN [Suspect]
     Dosage: 830 MG, UNK
     Dates: start: 20061109
  14. CARMUSTINE [Concomitant]
     Dosage: UNK
     Dates: start: 20070116
  15. IFOSFAMIDE [Suspect]
     Dosage: 9400 MG, UNK
     Dates: start: 20061109

REACTIONS (1)
  - ACUTE MYELOID LEUKAEMIA [None]
